FAERS Safety Report 18981606 (Version 1)
Quarter: 2021Q1

REPORT INFORMATION
  Report Type: Spontaneous
  Country: CN (occurrence: CN)
  Receive Date: 20210308
  Receipt Date: 20210308
  Transmission Date: 20210420
  Serious: Yes (Life-Threatening, Other)
  Sender: FDA-Public Use
  Company Number: CN-AMNEAL PHARMACEUTICALS-2021-AMRX-00740

PATIENT
  Age: 32 Year
  Sex: Male

DRUGS (2)
  1. POTASSIUM CHLORIDE. [Suspect]
     Active Substance: POTASSIUM CHLORIDE
     Indication: HYPOKALAEMIA
     Dosage: UNK
     Route: 048
  2. POTASSIUM CHLORIDE. [Suspect]
     Active Substance: POTASSIUM CHLORIDE
     Dosage: 10 GRAM, DAILY, AT A RATE OF 10 MMOL/H
     Route: 042

REACTIONS (4)
  - Hyperkalaemia [Recovered/Resolved]
  - Arteriospasm coronary [Recovered/Resolved]
  - Atrioventricular block complete [Recovered/Resolved]
  - Electrocardiogram ST segment elevation [Recovered/Resolved]
